FAERS Safety Report 6347307-9 (Version None)
Quarter: 2009Q3

REPORT INFORMATION
  Report Type: 
  Country: None (occurrence: None)
  Receive Date: 20090910
  Receipt Date: 20090831
  Transmission Date: 20100115
  Serious: Yes (Other)
  Sender: FDA-Public Use
  Company Number: AR-NOVOPROD-291411

PATIENT
  Age: 3 Year
  Sex: Male
  Weight: 15 kg

DRUGS (3)
  1. NOVORAPID PENFILL [Suspect]
     Indication: TYPE 1 DIABETES MELLITUS
     Dosage: 0.5-4 IU/DAY
     Route: 058
  2. NOVORAPID PENFILL [Suspect]
  3. INSULATARD FLEXPEN [Concomitant]
     Indication: TYPE 1 DIABETES MELLITUS
     Dosage: 6 IU, QD

REACTIONS (4)
  - INJECTION SITE PRURITUS [None]
  - INJECTION SITE URTICARIA [None]
  - MALAISE [None]
  - RASH GENERALISED [None]
